FAERS Safety Report 7961558-9 (Version None)
Quarter: 2011Q4

REPORT INFORMATION
  Report Type: 
  Country: None (occurrence: None)
  Receive Date: 20111202
  Receipt Date: 20111118
  Transmission Date: 20120403
  Serious: Yes (Hospitalization)
  Sender: FDA-Public Use
  Company Number: 2011P1013286

PATIENT
  Sex: Male

DRUGS (3)
  1. FENTANYL [Suspect]
     Indication: GENERAL ANAESTHESIA
  2. PROPOFOL [Suspect]
     Indication: GENERAL ANAESTHESIA
  3. SEVOFLURANE [Suspect]
     Indication: GENERAL ANAESTHESIA

REACTIONS (1)
  - NIGHTMARE [None]
